FAERS Safety Report 5194850-4 (Version None)
Quarter: 2006Q4

REPORT INFORMATION
  Report Type: 
  Country: None (occurrence: None)
  Receive Date: 20061227
  Receipt Date: 20061212
  Transmission Date: 20070319
  Serious: Yes (Other)
  Sender: FDA-Public Use
  Company Number: DSA_29025_2006

PATIENT
  Age: 74 Year
  Sex: Male
  Weight: 97.5234 kg

DRUGS (12)
  1. CARDIZEM LA [Suspect]
     Indication: BLOOD PRESSURE INCREASED
     Dosage: 420 MG QAM PO
     Route: 048
     Dates: start: 20040101, end: 20050101
  2. CARDIZEM LA [Suspect]
     Indication: BLOOD PRESSURE INCREASED
     Dosage: 240 MG BID PO
     Route: 048
     Dates: start: 20050101, end: 20050101
  3. CARDIZEM LA [Suspect]
     Indication: BLOOD PRESSURE INCREASED
     Dosage: 180 MG BID PO
     Route: 048
     Dates: start: 20050101, end: 20050101
  4. CARDIZEM LA [Suspect]
     Indication: BLOOD PRESSURE INCREASED
     Dosage: 180 MG QAM PO
     Route: 048
     Dates: start: 20060101, end: 20060101
  5. CARDIZEM LA [Suspect]
     Indication: BLOOD PRESSURE INCREASED
     Dosage: 240 MG QHS PO
     Route: 048
     Dates: start: 20060101, end: 20060101
  6. LIPITOR [Concomitant]
  7. DIOVAN [Concomitant]
  8. ALTACE [Concomitant]
  9. PLAVIX [Concomitant]
  10. FLOMAX [Concomitant]
  11. OMEGA 3 FISH OIL [Concomitant]
  12. MULTI-VITAMIN [Concomitant]

REACTIONS (8)
  - BLOOD PRESSURE DIASTOLIC DECREASED [None]
  - BLOOD PRESSURE INCREASED [None]
  - DIZZINESS [None]
  - DRUG INEFFECTIVE [None]
  - HEART RATE IRREGULAR [None]
  - INCORRECT DOSE ADMINISTERED [None]
  - METABOLIC DISORDER [None]
  - PHARMACEUTICAL PRODUCT COMPLAINT [None]
